FAERS Safety Report 16063273 (Version 1)
Quarter: 2019Q1

REPORT INFORMATION
  Report Type: Spontaneous
  Country: DE (occurrence: DE)
  Receive Date: 20190312
  Receipt Date: 20190312
  Transmission Date: 20190418
  Serious: Yes (Death)
  Sender: FDA-Public Use
  Company Number: DE-MYLANLABS-2019M1021684

PATIENT
  Age: 79 Year
  Sex: Male

DRUGS (9)
  1. FLUOROURACIL. [Interacting]
     Active Substance: FLUOROURACIL
     Dosage: D1 D2
  2. FLUOROURACIL. [Suspect]
     Active Substance: FLUOROURACIL
     Indication: PRODUCT USED FOR UNKNOWN INDICATION
     Dosage: 22 HOURS PUMP: D1,D2
  3. ONDANSETRON [Concomitant]
     Active Substance: ONDANSETRON
     Dosage: D 1 AND 2X D2
     Dates: start: 20170206
  4. CALCIUM FOLINATE [Concomitant]
     Active Substance: LEUCOVORIN CALCIUM
     Dosage: 22HOURS PUMP DAY 1 AND DAY 2
  5. OXALIPLATIN. [Suspect]
     Active Substance: OXALIPLATIN
     Indication: COLON CANCER
     Dosage: 130 MILLIGRAM
     Route: 042
     Dates: start: 20160404, end: 20160725
  6. IRINOTECAN [Concomitant]
     Active Substance: IRINOTECAN
     Dosage: D1
  7. CALCIUM FOLINATE [Concomitant]
     Active Substance: LEUCOVORIN CALCIUM
     Dosage: D1, D2
  8. PANITUMUMAB [Concomitant]
     Active Substance: PANITUMUMAB
     Dosage: DAY 1 (CYCLE LENGTH 14 D; TIME INTERVAL 14. SEP 2016-17. JAN. 2017)
  9. ONDANSETRON [Concomitant]
     Active Substance: ONDANSETRON
     Dosage: 8 MILLIGRAM, D1
     Dates: start: 20170206

REACTIONS (2)
  - Drug interaction [Unknown]
  - Neoplasm progression [Fatal]

NARRATIVE: CASE EVENT DATE: 20180827
